FAERS Safety Report 11629310 (Version 12)
Quarter: 2021Q4

REPORT INFORMATION
  Report Type: Spontaneous
  Country: US (occurrence: US)
  Receive Date: 20151014
  Receipt Date: 20211223
  Transmission Date: 20220303
  Serious: Yes (Other)
  Sender: FDA-Public Use
  Company Number: US-PFIZER INC-2015339994

PATIENT
  Age: 65 Year
  Sex: Female
  Weight: 58.05 kg

DRUGS (13)
  1. LYRICA [Suspect]
     Active Substance: PREGABALIN
     Indication: Post herpetic neuralgia
     Dosage: 75 MG, ONCE A DAY
     Route: 048
  2. LYRICA [Suspect]
     Active Substance: PREGABALIN
     Indication: Analgesic intervention supportive therapy
     Dosage: 150 MG, TWICE A DAY IN THE MORNING AND AT NIGHT
     Route: 048
     Dates: start: 2008
  3. LYRICA [Suspect]
     Active Substance: PREGABALIN
     Indication: Enthesopathy
     Dosage: 150 MG (1 CAPSULE TWICE A DAY 30 DAYS)
  4. LYRICA [Suspect]
     Active Substance: PREGABALIN
     Indication: Spinal osteoarthritis
  5. LYRICA [Suspect]
     Active Substance: PREGABALIN
     Indication: Arthralgia
  6. LYRICA [Suspect]
     Active Substance: PREGABALIN
     Indication: Back pain
  7. HYDROCHLOROTHIAZIDE [Concomitant]
     Active Substance: HYDROCHLOROTHIAZIDE
     Indication: Fluid retention
     Dosage: 25 MG, 1X/DAY
  8. CARVEDILOL [Concomitant]
     Active Substance: CARVEDILOL
     Indication: Blood pressure abnormal
     Dosage: 25 MG, 2X/DAY
  9. ACETAMINOPHEN\HYDROCODONE [Concomitant]
     Active Substance: ACETAMINOPHEN\HYDROCODONE
     Indication: Pain
     Dosage: [HYDROCODONE 10/ PARACETAMOL 500], UNK
  10. ACETAMINOPHEN\HYDROCODONE [Concomitant]
     Active Substance: ACETAMINOPHEN\HYDROCODONE
     Dosage: [HYDROCODONE 10 /PARACETAMOL 325], 4X/DAY AS NEEDED
  11. CLONAZEPAM [Concomitant]
     Active Substance: CLONAZEPAM
     Indication: Anxiety
     Dosage: 1 MG, 2X/DAY (IF NEEDED)
  12. AMBIEN [Concomitant]
     Active Substance: ZOLPIDEM TARTRATE
     Dosage: UNK
  13. ZOLPIDEM TARTRATE [Concomitant]
     Active Substance: ZOLPIDEM TARTRATE
     Indication: Sleep disorder
     Dosage: 10 MG, 1X/DAY (AT BEDTIME)

REACTIONS (16)
  - Loss of personal independence in daily activities [Unknown]
  - Asthenia [Unknown]
  - Cataract [Not Recovered/Not Resolved]
  - Eye disorder [Unknown]
  - Drug ineffective [Unknown]
  - Pruritus [Unknown]
  - Insomnia [Unknown]
  - Illness [Unknown]
  - Peripheral swelling [Recovered/Resolved]
  - Somnolence [Unknown]
  - Malaise [Unknown]
  - Gait disturbance [Recovered/Resolved]
  - Pain [Unknown]
  - Thinking abnormal [Unknown]
  - Memory impairment [Unknown]
  - Malaise [Unknown]

NARRATIVE: CASE EVENT DATE: 20150101
